FAERS Safety Report 14651361 (Version 1)
Quarter: 2018Q1

REPORT INFORMATION
  Report Type: Spontaneous
  Country: US (occurrence: US)
  Receive Date: 20180316
  Receipt Date: 20180316
  Transmission Date: 20180509
  Serious: Yes (Other)
  Sender: FDA-Public Use
  Company Number: None

PATIENT
  Age: 35 Year
  Sex: Female
  Weight: 62.1 kg

DRUGS (1)
  1. MESALAMINE. [Suspect]
     Active Substance: MESALAMINE
     Indication: COLITIS ULCERATIVE
     Dosage: ?          QUANTITY:120 TABLET(S);?
     Route: 048
     Dates: start: 20171201, end: 20180315

REACTIONS (3)
  - Product substitution issue [None]
  - Product solubility abnormal [None]
  - Product coating issue [None]

NARRATIVE: CASE EVENT DATE: 20180315
